FAERS Safety Report 23526446 (Version 1)
Quarter: 2024Q1

REPORT INFORMATION
  Report Type: Spontaneous
  Country: SK (occurrence: SK)
  Receive Date: 20240215
  Receipt Date: 20240215
  Transmission Date: 20240410
  Serious: Yes (Hospitalization)
  Sender: FDA-Public Use
  Company Number: SK-ELI_LILLY_AND_COMPANY-SK202402001413

PATIENT
  Age: 39 Year
  Sex: Female

DRUGS (7)
  1. OLANZAPINE [Suspect]
     Active Substance: OLANZAPINE
     Indication: Acute psychosis
     Dosage: DAILY DOSE: 10 MILLIGRAM
     Dates: start: 202201
  2. OLANZAPINE [Suspect]
     Active Substance: OLANZAPINE
     Indication: Negative symptoms in schizophrenia
     Dosage: DAILY DOSE: 10 MILLIGRAM
     Dates: start: 202201
  3. OLANZAPINE [Suspect]
     Active Substance: OLANZAPINE
     Indication: Acute psychosis
     Dosage: PREVIOUSLY TAKEN OLANZAPINE 10 MG WITH START IN JAN-2022?DAILY DOSE: 15 MILLIGRAM
     Dates: start: 202202, end: 202202
  4. OLANZAPINE [Suspect]
     Active Substance: OLANZAPINE
     Indication: Negative symptoms in schizophrenia
     Dosage: PREVIOUSLY TAKEN OLANZAPINE 10 MG WITH START IN JAN-2022?DAILY DOSE: 15 MILLIGRAM
     Dates: start: 202202, end: 202202
  5. QUETIAPINE [Suspect]
     Active Substance: QUETIAPINE
     Indication: Product used for unknown indication
     Dosage: PATIENT ALONE DECREASED DOSE?DAILY DOSE: 600 MILLIGRAM
     Dates: start: 202202
  6. PALIPERIDONE [Suspect]
     Active Substance: PALIPERIDONE
     Indication: Schizophrenia
     Dosage: DAILY DOSE: 6 MILLIGRAM
  7. ARIPIPRAZOLE [Suspect]
     Active Substance: ARIPIPRAZOLE
     Indication: Schizophrenia
     Dosage: DAILY DOSE: 15 MILLIGRAM

REACTIONS (5)
  - Condition aggravated [Recovered/Resolved]
  - Acute psychosis [Unknown]
  - Hallucination [Unknown]
  - Affective disorder [Unknown]
  - Sleep disorder [Unknown]

NARRATIVE: CASE EVENT DATE: 20230601
